FAERS Safety Report 5168341-0 (Version None)
Quarter: 2006Q4

REPORT INFORMATION
  Report Type: 
  Country: None (occurrence: None)
  Receive Date: 20061208
  Receipt Date: 20061128
  Transmission Date: 20070319
  Serious: Yes (Hospitalization)
  Sender: FDA-Public Use
  Company Number: FR-JNJFOC-20060307646

PATIENT
  Age: 90 Year
  Sex: Female

DRUGS (8)
  1. DAKTARIN [Suspect]
     Indication: ORAL FUNGAL INFECTION
     Route: 048
     Dates: start: 20051121, end: 20051207
  2. SINTROM [Interacting]
     Indication: ATRIAL FLUTTER
     Route: 048
     Dates: end: 20051207
  3. NEXIUM [Concomitant]
     Route: 065
  4. APROVEL [Concomitant]
     Indication: HYPERTENSIVE HEART DISEASE
     Dates: end: 20051207
  5. LASIX [Concomitant]
     Indication: HYPERTENSIVE HEART DISEASE
     Dates: end: 20051207
  6. DAFALGAN [Concomitant]
     Dates: end: 20051207
  7. PRAVASTATIN [Concomitant]
     Indication: HYPERCHOLESTEROLAEMIA
     Dates: end: 20051207
  8. ADANCOR [Concomitant]
     Route: 065

REACTIONS (3)
  - DRUG INTERACTION [None]
  - EPISTAXIS [None]
  - HAEMATOMA [None]
